FAERS Safety Report 5621442-2 (Version None)
Quarter: 2008Q1

REPORT INFORMATION
  Report Type: 
  Country: None (occurrence: None)
  Receive Date: 20080206
  Receipt Date: 20080125
  Transmission Date: 20080703
  Serious: Yes (Hospitalization)
  Sender: FDA-Public Use
  Company Number: 230991J08USA

PATIENT
  Age: 23 Year
  Sex: Female

DRUGS (2)
  1. REBIF [Suspect]
     Indication: MULTIPLE SCLEROSIS
     Dosage: 44 MCG, 3 IN 1 WEEKS, SUBCUTANEOUS
     Route: 058
     Dates: start: 20060622
  2. CYMBALTA [Suspect]
     Indication: DEPRESSION
     Dates: end: 20080101

REACTIONS (10)
  - ANXIETY [None]
  - BIPOLAR DISORDER [None]
  - CHEST PAIN [None]
  - DIARRHOEA [None]
  - DYSPNOEA [None]
  - EATING DISORDER [None]
  - FIBROMYALGIA [None]
  - MALAISE [None]
  - PAIN IN JAW [None]
  - SCHIZOAFFECTIVE DISORDER [None]
